FAERS Safety Report 4829926-1 (Version None)
Quarter: 2005Q4

REPORT INFORMATION
  Report Type: 
  Country: None (occurrence: None)
  Receive Date: 20051115
  Receipt Date: 20051101
  Transmission Date: 20060501
  Serious: Yes (Hospitalization)
  Sender: FDA-Public Use
  Company Number: 2005RR-01059

PATIENT
  Age: 84 Year
  Sex: Male

DRUGS (7)
  1. ASPIRIN [Suspect]
     Indication: MYOCARDIAL ISCHAEMIA
     Dosage: 75 MG, QD, ORAL
     Route: 048
     Dates: end: 20050922
  2. FLUOXETINE [Suspect]
     Indication: DEPRESSION
     Dosage: 20 MG, QD, ORAL
     Route: 048
  3. ISOSORBIDE MONONITRATE [Concomitant]
  4. LANSOPRAZOLE [Concomitant]
  5. AMLODIPINE [Concomitant]
  6. FUROSEMIDE [Concomitant]
  7. PERINDOPRIL [Concomitant]

REACTIONS (1)
  - GASTROINTESTINAL HAEMORRHAGE [None]
